FAERS Safety Report 25635578 (Version 1)
Quarter: 2025Q3

REPORT INFORMATION
  Report Type: Spontaneous
  Country: US (occurrence: US)
  Receive Date: 20250802
  Receipt Date: 20250802
  Transmission Date: 20251021
  Serious: Yes (Other)
  Sender: SHILPA MEDICARE
  Company Number: US-MLMSERVICE-20250710-PI573526-00123-1

PATIENT
  Age: 50 Year
  Sex: Female

DRUGS (2)
  1. DOCETAXEL [Suspect]
     Active Substance: DOCETAXEL
     Indication: Ovarian granulosa cell tumour
  2. BEVACIZUMAB [Concomitant]
     Active Substance: BEVACIZUMAB
     Indication: Ovarian granulosa cell tumour

REACTIONS (4)
  - Serositis [Unknown]
  - Capillary leak syndrome [Unknown]
  - Pericardial effusion [Unknown]
  - Pleural effusion [Recovering/Resolving]
